FAERS Safety Report 11827998 (Version 2)
Quarter: 2015Q4

REPORT INFORMATION
  Report Type: Spontaneous
  Country: JP (occurrence: JP)
  Receive Date: 20151211
  Receipt Date: 20151221
  Transmission Date: 20160305
  Serious: Yes (Other)
  Sender: FDA-Public Use
  Company Number: JP-ASTRAZENECA-2015SF20847

PATIENT
  Age: 31268 Day
  Sex: Female
  Weight: 39 kg

DRUGS (14)
  1. OMEPRAZON [Suspect]
     Active Substance: OMEPRAZOLE
     Indication: PROPHYLAXIS
     Route: 048
     Dates: start: 20140306, end: 20151114
  2. BAYASPIRIN [Concomitant]
     Active Substance: ASPIRIN
     Route: 065
  3. ARICEPT [Concomitant]
     Active Substance: DONEPEZIL HYDROCHLORIDE
     Route: 048
     Dates: start: 20130326
  4. PLETAAL [Concomitant]
     Active Substance: CILOSTAZOL
     Indication: CEREBRAL INFARCTION
     Dosage: 2 TABLETS TWICE DAILY IN THE MORNING AND EVENING
     Route: 048
     Dates: start: 20130326
  5. WARFARIN [Concomitant]
     Active Substance: WARFARIN
     Route: 048
     Dates: start: 20150810, end: 20151104
  6. LAXOBERON [Concomitant]
     Active Substance: SODIUM PICOSULFATE
     Dosage: AS REQUIRED DURING CONSTIPATION
     Route: 048
     Dates: start: 20151109
  7. PLETAAL [Concomitant]
     Active Substance: CILOSTAZOL
     Indication: CEREBRAL INFARCTION
     Dosage: 1 TABLET DAILY IN THE MORNING
     Route: 048
     Dates: start: 20140317, end: 20150810
  8. ARICEPT [Concomitant]
     Active Substance: DONEPEZIL HYDROCHLORIDE
     Route: 048
     Dates: start: 20120521
  9. MEROPEN [Concomitant]
     Active Substance: MEROPENEM
     Indication: PYELONEPHRITIS ACUTE
     Dates: start: 20130219
  10. EXELON [Concomitant]
     Active Substance: RIVASTIGMINE TARTRATE
     Route: 061
     Dates: end: 20140306
  11. BASSAMIN [Concomitant]
     Active Substance: ASPIRIN\DIHYDROXYALUMINUM AMINOACETATE\MAGNESIUM CARBONATE
     Indication: PROPHYLAXIS
     Route: 048
     Dates: start: 20151109, end: 20151114
  12. MAGMITT [Concomitant]
     Active Substance: MAGNESIUM OXIDE
     Dosage: 3 TABLETS THRICE DAILY AFTER EACH MEAL
     Route: 048
  13. JZOLOFT [Concomitant]
     Active Substance: SERTRALINE HYDROCHLORIDE
     Route: 065
     Dates: end: 20140306
  14. KAMAG G [Concomitant]
     Active Substance: MAGNESIUM OXIDE
     Dosage: 0.5 GM THREE TIMES A DAY
     Route: 048
     Dates: start: 20150323, end: 20151026

REACTIONS (5)
  - White blood cell count decreased [Not Recovered/Not Resolved]
  - Vomiting [Recovered/Resolved]
  - Frequent bowel movements [Unknown]
  - Pneumonia [Unknown]
  - Anaemia [Not Recovered/Not Resolved]

NARRATIVE: CASE EVENT DATE: 20140407
